FAERS Safety Report 5081685-6 (Version None)
Quarter: 2006Q3

REPORT INFORMATION
  Report Type: 
  Country: None (occurrence: None)
  Receive Date: 20060816
  Receipt Date: 20060810
  Transmission Date: 20061208
  Serious: Yes (Other)
  Sender: FDA-Public Use
  Company Number: US-BOEHRINGER INGELHEIM PHARMACEUTICALS, INC.-2006-DE-04208GD

PATIENT

DRUGS (1)
  1. DIPYRIDAMOLE [Suspect]
     Indication: CARDIAC STRESS TEST

REACTIONS (13)
  - ARRHYTHMIA SUPRAVENTRICULAR [None]
  - ATRIOVENTRICULAR BLOCK SECOND DEGREE [None]
  - ATRIOVENTRICULAR BLOCK THIRD DEGREE [None]
  - CHEST PAIN [None]
  - DIZZINESS [None]
  - DYSPNOEA [None]
  - FLUSHING [None]
  - HEADACHE [None]
  - NECK PAIN [None]
  - PAIN IN JAW [None]
  - PALPITATIONS [None]
  - PHARYNGOLARYNGEAL PAIN [None]
  - VENTRICULAR ARRHYTHMIA [None]
